FAERS Safety Report 17239840 (Version 5)
Quarter: 2021Q1

REPORT INFORMATION
  Report Type: Spontaneous
  Country: PL (occurrence: PL)
  Receive Date: 20200106
  Receipt Date: 20210312
  Transmission Date: 20210419
  Serious: Yes (Life-Threatening, Hospitalization, Other)
  Sender: FDA-Public Use
  Company Number: PL-AUROBINDO-AUR-APL-2020-000426

PATIENT
  Age: 74 Year
  Sex: Male

DRUGS (17)
  1. PARACETAMOL [Interacting]
     Active Substance: ACETAMINOPHEN
     Indication: HEADACHE
     Dosage: UNK
     Route: 065
  2. AMIODARONE [Interacting]
     Active Substance: AMIODARONE
     Indication: ATRIAL FIBRILLATION
     Dosage: 200 MILLIGRAM, ONCE A DAY
     Route: 065
  3. METOPROLOL. [Concomitant]
     Active Substance: METOPROLOL
     Indication: PRODUCT USED FOR UNKNOWN INDICATION
     Dosage: UNK, INITIALLY USED INTRAVENOUSLY ? THEN ORALLY
     Route: 065
  4. RIVAROXABAN [Interacting]
     Active Substance: RIVAROXABAN
     Indication: ATRIAL FIBRILLATION
     Dosage: 20 MILLIGRAM, ONCE A DAY
     Route: 065
  5. PROPRANOLOL [Interacting]
     Active Substance: PROPRANOLOL HYDROCHLORIDE
     Dosage: 10 MILLIGRAM, TWO TIMES A DAY
     Route: 065
  6. AMIODARONE [Interacting]
     Active Substance: AMIODARONE
     Dosage: UNK
     Route: 042
  7. IBUPROFEN. [Interacting]
     Active Substance: IBUPROFEN
     Indication: HEADACHE
     Dosage: UNK
     Route: 065
  8. OMEPRAZOLE. [Suspect]
     Active Substance: OMEPRAZOLE
     Indication: PRODUCT USED FOR UNKNOWN INDICATION
     Dosage: 40 MILLIGRAM, ONCE A DAY
     Route: 048
  9. AGOMELATINE [Suspect]
     Active Substance: AGOMELATINE
     Indication: ANHEDONIA
     Dosage: 25 MILLIGRAM, ONCE A DAY (AT BEDTIME)
     Route: 065
  10. VALDOXAN [Interacting]
     Active Substance: AGOMELATINE
     Indication: ANHEDONIA
     Dosage: 25 MILLIGRAM, ONCE A DAY (AT BEDTIME)
     Route: 065
  11. KETOPROFEN. [Interacting]
     Active Substance: KETOPROFEN
     Indication: HEADACHE
     Dosage: UNK
     Route: 065
  12. VALDOXAN [Interacting]
     Active Substance: AGOMELATINE
     Indication: DEPRESSION
  13. PROPRANOLOL [Interacting]
     Active Substance: PROPRANOLOL HYDROCHLORIDE
     Indication: ATRIAL FIBRILLATION
     Dosage: 20 MILLIGRAM, ONCE A DAY
     Route: 065
  14. METAMIZOLE [Interacting]
     Active Substance: METAMIZOLE
     Indication: HEADACHE
     Dosage: UNK
     Route: 065
  15. CIPROFLOXACIN. [Interacting]
     Active Substance: CIPROFLOXACIN
     Indication: URINARY TRACT INFECTION
     Dosage: 500 MILLIGRAM, ONCE A DAY (BEFORE BED)
     Route: 065
  16. POTASSIUM CHLORIDE. [Interacting]
     Active Substance: POTASSIUM CHLORIDE
     Indication: PRODUCT USED FOR UNKNOWN INDICATION
     Dosage: UNK
     Route: 042
  17. AGOMELATINE [Suspect]
     Active Substance: AGOMELATINE
     Indication: DEPRESSION

REACTIONS (17)
  - Abdominal pain [Recovered/Resolved]
  - Pain [Recovered/Resolved]
  - Blood sodium decreased [Recovered/Resolved]
  - Depression [Recovered/Resolved]
  - Blood potassium decreased [Recovered/Resolved]
  - Anhedonia [Recovered/Resolved]
  - Contraindicated product administered [Recovered/Resolved]
  - Hyperhidrosis [Recovered/Resolved]
  - Drug ineffective [Recovered/Resolved]
  - Tachycardia [Recovered/Resolved]
  - Diarrhoea [Recovered/Resolved]
  - Drug interaction [Recovered/Resolved]
  - Headache [Recovered/Resolved]
  - Asthenia [Recovered/Resolved]
  - Abdominal pain upper [Recovered/Resolved]
  - Alanine aminotransferase increased [Recovered/Resolved]
  - Product use in unapproved indication [Unknown]

NARRATIVE: CASE EVENT DATE: 2019
